FAERS Safety Report 21020330 (Version 1)
Quarter: 2022Q2

REPORT INFORMATION
  Report Type: Report from Study
  Country: CH (occurrence: CH)
  Receive Date: 20220628
  Receipt Date: 20220628
  Transmission Date: 20220721
  Serious: Yes (Hospitalization)
  Sender: FDA-Public Use
  Company Number: CH-ABBVIE-22K-151-4448497-00

PATIENT
  Age: 78 Year
  Sex: Female

DRUGS (4)
  1. CARBIDOPA\LEVODOPA [Suspect]
     Active Substance: CARBIDOPA\LEVODOPA
     Indication: Parkinson^s disease
     Dosage: MD: 2 ML, CRD: 2.5 ML/H, CRN: 0 ML/H, ED: 0.5 ML
     Route: 050
     Dates: start: 20220221, end: 2022
  2. CARBIDOPA\LEVODOPA [Suspect]
     Active Substance: CARBIDOPA\LEVODOPA
     Dosage: MD: 0.5 ML, CRD: 1.7ML/H, CRN: 0 ML/H, ED: 0.5 ML
     Route: 050
     Dates: start: 20220608, end: 20220624
  3. CARBIDOPA\LEVODOPA [Suspect]
     Active Substance: CARBIDOPA\LEVODOPA
     Dosage: MD: 0.5 ML, CRD: 1.7ML/H, CRN: 0 ML/H, ED: 0.5 ML
     Route: 050
     Dates: start: 20220624
  4. CARBIDOPA AND LEVODOPA [Concomitant]
     Active Substance: CARBIDOPA\LEVODOPA
     Indication: Parkinson^s disease
     Dosage: 1X 50/200 MG?CARBIDOPA + LEVODOPA SANDOZ
     Route: 048
     Dates: start: 20220511

REACTIONS (2)
  - Device defective [Unknown]
  - Off label use [Unknown]

NARRATIVE: CASE EVENT DATE: 20220624
